FAERS Safety Report 8443623-5 (Version None)
Quarter: 2012Q2

REPORT INFORMATION
  Report Type: 
  Country: None (occurrence: None)
  Receive Date: 20120618
  Receipt Date: 20120608
  Transmission Date: 20120825
  Serious: Yes (Other)
  Sender: FDA-Public Use
  Company Number: CA-JNJFOC-20120604775

PATIENT
  Sex: Female
  Weight: 52 kg

DRUGS (4)
  1. TYLENOL W/ CODEINE NO. 2 [Concomitant]
     Route: 065
  2. REMICADE [Suspect]
     Indication: COLITIS ULCERATIVE
     Route: 042
     Dates: start: 20110928
  3. REMICADE [Suspect]
     Route: 042
     Dates: start: 20120608
  4. ASACOL [Concomitant]
     Route: 065

REACTIONS (2)
  - JOINT STIFFNESS [None]
  - INFLAMMATORY PAIN [None]
